FAERS Safety Report 20435677 (Version 1)
Quarter: 2022Q1

REPORT INFORMATION
  Report Type: Spontaneous
  Country: AU (occurrence: AU)
  Receive Date: 20220207
  Receipt Date: 20220207
  Transmission Date: 20220423
  Serious: Yes (Hospitalization)
  Sender: FDA-Public Use
  Company Number: AU-LUPIN PHARMACEUTICALS INC.-2022-01492

PATIENT
  Age: 31 Year
  Sex: Male

DRUGS (4)
  1. TESTOSTERONE [Suspect]
     Active Substance: TESTOSTERONE
     Indication: Product used for unknown indication
     Dosage: UNK, (REGULAR INJECTION)
     Route: 030
  2. HYALURONIC ACID [Suspect]
     Active Substance: HYALURONIC ACID
     Indication: Drug therapy
     Dosage: UNK
     Route: 058
  3. PREDNISONE [Concomitant]
     Active Substance: PREDNISONE
     Indication: Penile swelling
     Dosage: 50 MILLIGRAM; SELF-ADMINISTERED
     Route: 048
  4. PREDNISONE [Concomitant]
     Active Substance: PREDNISONE
     Indication: Pain

REACTIONS (2)
  - Penile infection [Recovering/Resolving]
  - Streptococcal infection [Recovering/Resolving]
